FAERS Safety Report 13258637 (Version 2)
Quarter: 2017Q2

REPORT INFORMATION
  Report Type: Spontaneous
  Country: US (occurrence: US)
  Receive Date: 20170222
  Receipt Date: 20170606
  Transmission Date: 20170830
  Serious: No
  Sender: FDA-Public Use
  Company Number: US-TEVA-736167ACC

PATIENT
  Age: 15 Year
  Sex: Female
  Weight: 75.36 kg

DRUGS (2)
  1. PARAGARD T 380A [Suspect]
     Active Substance: COPPER
     Indication: CONTRACEPTION
     Dates: start: 20170120, end: 20170120
  2. PARAGARD T 380A [Suspect]
     Active Substance: COPPER
     Dates: start: 20170118, end: 20170118

REACTIONS (1)
  - Device expulsion [Unknown]

NARRATIVE: CASE EVENT DATE: 20170120
